FAERS Safety Report 10299866 (Version 3)
Quarter: 2015Q3

REPORT INFORMATION
  Report Type: Spontaneous
  Country: US (occurrence: US)
  Receive Date: 20140711
  Receipt Date: 20150817
  Transmission Date: 20151125
  Serious: No
  Sender: FDA-Public Use
  Company Number: US-GILEAD-2013-0083891

PATIENT
  Age: 64 Year
  Sex: Male

DRUGS (2)
  1. FLOLAN [Suspect]
     Active Substance: EPOPROSTENOL SODIUM
     Indication: PULMONARY ARTERIAL HYPERTENSION
     Dosage: 25NGKM CONTINUOUS
     Route: 065
     Dates: start: 20110427
  2. LETAIRIS [Suspect]
     Active Substance: AMBRISENTAN
     Indication: PRODUCT USED FOR UNKNOWN INDICATION
     Dosage: UNK
     Dates: start: 201309

REACTIONS (9)
  - Device occlusion [Unknown]
  - Miliaria [Unknown]
  - Oedema peripheral [Not Recovered/Not Resolved]
  - Suture related complication [Unknown]
  - Catheter site erythema [Unknown]
  - Diarrhoea [Unknown]
  - Peripheral swelling [Unknown]
  - Medical device complication [Unknown]
  - Device alarm issue [Unknown]

NARRATIVE: CASE EVENT DATE: 201309
